FAERS Safety Report 25651072 (Version 1)
Quarter: 2025Q3

REPORT INFORMATION
  Report Type: Spontaneous
  Country: US (occurrence: None)
  Receive Date: 20250806
  Receipt Date: 20250806
  Transmission Date: 20251020
  Serious: Yes (Hospitalization)
  Sender: FDA-CTU
  Company Number: None

PATIENT
  Age: 63 Year
  Sex: Male

DRUGS (9)
  1. CYCLOSPORINE [Suspect]
     Active Substance: CYCLOSPORINE
     Indication: Transplant
     Dosage: FREQUENCY : TWICE A DAY;?
     Route: 048
  2. CYCLOSPORINE [Suspect]
     Active Substance: CYCLOSPORINE
     Indication: Transplant
     Dosage: FREQUENCY : DAILY;?
     Route: 048
  3. PREDNISONE [Concomitant]
     Active Substance: PREDNISONE
  4. HYDRALAZINE 100MG TABS [Concomitant]
  5. METOPROLOL SUCCINATE [Concomitant]
     Active Substance: METOPROLOL SUCCINATE
  6. PRAVASTATIN 80MG TABLETS [Concomitant]
  7. CALCIUM 500+ D TABLETS [Concomitant]
  8. VITAMIN C 1000MG TABLETS [Concomitant]
  9. VITAMIN E 400IU CAPSULES [Concomitant]

REACTIONS (2)
  - Unevaluable event [None]
  - Hypoaesthesia [None]

NARRATIVE: CASE EVENT DATE: 20250728
